FAERS Safety Report 16820684 (Version 1)
Quarter: 2019Q3

REPORT INFORMATION
  Report Type: Spontaneous
  Country: US (occurrence: US)
  Receive Date: 20190918
  Receipt Date: 20190918
  Transmission Date: 20191005
  Serious: Yes (Other)
  Sender: FDA-Public Use
  Company Number: US-UCBSA-2019039802

PATIENT
  Age: 60 Year
  Sex: Female

DRUGS (1)
  1. XYZAL [Suspect]
     Active Substance: LEVOCETIRIZINE DIHYDROCHLORIDE
     Indication: HYPERSENSITIVITY
     Dosage: 5 MILLIGRAM, ONCE DAILY (QD)
     Dates: start: 20190912, end: 20190912

REACTIONS (7)
  - Headache [Not Recovered/Not Resolved]
  - Asthenia [Recovering/Resolving]
  - Fatigue [Recovering/Resolving]
  - Dry mouth [Unknown]
  - Feeling abnormal [Recovering/Resolving]
  - Tunnel vision [Recovering/Resolving]
  - Pigmentation disorder [Recovering/Resolving]
